FAERS Safety Report 24296384 (Version 2)
Quarter: 2024Q4

REPORT INFORMATION
  Report Type: Spontaneous
  Country: US (occurrence: US)
  Receive Date: 20240909
  Receipt Date: 20241205
  Transmission Date: 20250114
  Serious: No
  Sender: AUROBINDO
  Company Number: US-AUROBINDO-AUR-APL-2024-035531

PATIENT
  Age: 45 Year
  Sex: Female

DRUGS (1)
  1. MEDROXYPROGESTERONE ACETATE [Suspect]
     Active Substance: MEDROXYPROGESTERONE ACETATE
     Indication: Product used for unknown indication
     Dosage: UNK
     Route: 065

REACTIONS (2)
  - Product dose omission issue [Unknown]
  - Product packaging issue [Unknown]
